FAERS Safety Report 21921598 (Version 1)
Quarter: 2023Q1

REPORT INFORMATION
  Report Type: Report from Study
  Country: AU (occurrence: AU)
  Receive Date: 20230127
  Receipt Date: 20230127
  Transmission Date: 20230418
  Serious: Yes (Other)
  Sender: FDA-Public Use
  Company Number: AU-VERTEX PHARMACEUTICALS-2022-014364

PATIENT
  Sex: Male

DRUGS (11)
  1. TRIKAFTA [Suspect]
     Active Substance: ELEXACAFTOR\IVACAFTOR\TEZACAFTOR
     Indication: Cystic fibrosis
     Dosage: FULL DOSE
     Route: 048
     Dates: start: 20220713, end: 2022
  2. TRIKAFTA [Suspect]
     Active Substance: ELEXACAFTOR\IVACAFTOR\TEZACAFTOR
     Dosage: NOT ON FULL DOSE
     Route: 048
  3. TRIKAFTA [Suspect]
     Active Substance: ELEXACAFTOR\IVACAFTOR\TEZACAFTOR
     Dosage: TITRATING UP
     Route: 048
     Dates: start: 202210
  4. TRIKAFTA [Suspect]
     Active Substance: ELEXACAFTOR\IVACAFTOR\TEZACAFTOR
     Dosage: 2 TABS IN AM ON SUN AND WED, 1 TAB IN AM EVERY OTHER DAY, AND BLUE TAB AT EVERY NIGHT
     Route: 048
     Dates: start: 2022
  5. TRIKAFTA [Suspect]
     Active Substance: ELEXACAFTOR\IVACAFTOR\TEZACAFTOR
     Dosage: TWO TABS AM ON M/ W/ F, AND 1 TAB AM ON EVERY OTHER DAY, AND BLUE TAB AT EVERY NIGHT
     Route: 048
  6. TRIKAFTA [Suspect]
     Active Substance: ELEXACAFTOR\IVACAFTOR\TEZACAFTOR
     Dosage: TWO TABS AM ON M/F, AND 1 TAB AM ON EVERY OTHER DAY, AND BLUE TAB AT EVERY NIGHT
     Route: 048
  7. TRIKAFTA [Suspect]
     Active Substance: ELEXACAFTOR\IVACAFTOR\TEZACAFTOR
     Dosage: TWO TABS AM ON SUN/THUR, AND 1 TAB AM ON EVERY OTHER DAY, AND BLUE TAB AT EVERY NIGHT
     Route: 048
  8. CREON [Concomitant]
     Active Substance: PANCRELIPASE AMYLASE\PANCRELIPASE LIPASE\PANCRELIPASE PROTEASE
  9. NEXIUM [Concomitant]
     Active Substance: ESOMEPRAZOLE MAGNESIUM
     Indication: Gastrooesophageal reflux disease
  10. POLYETHYLENE GLYCOL 3350\POTASSIUM CHLORIDE\SODIUM BICARBONATE\SODIUM [Concomitant]
     Active Substance: POLYETHYLENE GLYCOL 3350\POTASSIUM CHLORIDE\SODIUM BICARBONATE\SODIUM CHLORIDE
     Indication: Distal intestinal obstruction syndrome
     Dosage: UNK
  11. POLYETHYLENE GLYCOL 3350\POTASSIUM CHLORIDE\SODIUM BICARBONATE\SODIUM [Concomitant]
     Active Substance: POLYETHYLENE GLYCOL 3350\POTASSIUM CHLORIDE\SODIUM BICARBONATE\SODIUM CHLORIDE
     Dosage: DOWN TO 2 SCAHETS (NEEDING LESSER)

REACTIONS (13)
  - Weight increased [Not Recovered/Not Resolved]
  - Abdominal pain upper [Not Recovered/Not Resolved]
  - Petit mal epilepsy [Not Recovered/Not Resolved]
  - Partial seizures [Recovering/Resolving]
  - Blood iron decreased [Unknown]
  - Gastrointestinal disorder [Not Recovered/Not Resolved]
  - Faeces discoloured [Not Recovered/Not Resolved]
  - Overgrowth fungal [Unknown]
  - Food intolerance [Not Recovered/Not Resolved]
  - Dairy intolerance [Not Recovered/Not Resolved]
  - SARS-CoV-2 test positive [Recovering/Resolving]
  - Asthma [Not Recovered/Not Resolved]
  - Abdominal distension [Not Recovered/Not Resolved]

NARRATIVE: CASE EVENT DATE: 20220101
